FAERS Safety Report 18526212 (Version 1)
Quarter: 2020Q4

REPORT INFORMATION
  Report Type: Spontaneous
  Country: SE (occurrence: SE)
  Receive Date: 20201120
  Receipt Date: 20201120
  Transmission Date: 20210114
  Serious: Yes (Death, Life-Threatening, Hospitalization, Other)
  Sender: FDA-Public Use
  Company Number: SE-TEVA-2020-SE-1850364

PATIENT
  Age: 4 Year
  Sex: Male

DRUGS (7)
  1. CAPTOPRIL. [Suspect]
     Active Substance: CAPTOPRIL
     Dosage: 1/4-PART TABLET OF CAPTOPRIL 25 MG (6.25MGX 3), UNIT DOSE 6.25MG
     Dates: start: 201706, end: 2019
  2. CAPTOPRIL. [Suspect]
     Active Substance: CAPTOPRIL
     Dosage: 18 MILLIGRAM DAILY;
     Route: 048
     Dates: start: 201510, end: 20170702
  3. LANOXIN [Concomitant]
     Active Substance: DIGOXIN
     Dosage: UNK
     Dates: start: 20151204, end: 2019
  4. CAPTOPRIL. [Suspect]
     Active Substance: CAPTOPRIL
     Indication: CARDIAC FAILURE
     Dosage: 18.75 MILLIGRAM DAILY;
     Route: 048
     Dates: start: 20170703, end: 20190729
  5. CAPTOPRIL. [Suspect]
     Active Substance: CAPTOPRIL
     Dosage: 1 MG/ML (6MGX3), UNIT DOSE 6MG
     Dates: start: 2015, end: 201706
  6. IMPUGAN                            /00032601/ [Concomitant]
     Active Substance: FUROSEMIDE
     Dosage: THERAPY START DATE :ASKU, THERAPY END DATE :ASKU
  7. SPIRONOLAKTON [Concomitant]
     Active Substance: SPIRONOLACTONE
     Dosage: UNK, THERAPY START DATE :ASKU, THERAPY END DATE :ASKU

REACTIONS (11)
  - Haemorrhage [Unknown]
  - Epistaxis [Unknown]
  - Colitis [Fatal]
  - Vomiting [Unknown]
  - Pancytopenia [Fatal]
  - Loss of consciousness [Unknown]
  - Fatigue [Unknown]
  - Diarrhoea [Unknown]
  - Aplastic anaemia [Unknown]
  - Contusion [Unknown]
  - Respiration abnormal [Unknown]

NARRATIVE: CASE EVENT DATE: 2019
